FAERS Safety Report 9678230 (Version 1)
Quarter: 2013Q4

REPORT INFORMATION
  Report Type: Spontaneous
  Country: US (occurrence: None)
  Receive Date: 20131106
  Receipt Date: 20131106
  Transmission Date: 20140711
  Serious: Yes (Other)
  Sender: FDA-Public Use
  Company Number: ORE201310-000023

PATIENT
  Sex: Female
  Weight: 91.17 kg

DRUGS (2)
  1. ZUBSOLV [Suspect]
     Indication: DRUG DEPENDENCE
     Route: 048
     Dates: start: 20130908
  2. CYMBALTA [Concomitant]

REACTIONS (2)
  - Paraesthesia [None]
  - Mental disorder [None]
